FAERS Safety Report 5922119-6 (Version None)
Quarter: 2008Q4

REPORT INFORMATION
  Report Type: 
  Country: None (occurrence: None)
  Receive Date: 20081017
  Receipt Date: 20081010
  Transmission Date: 20090506
  Serious: Yes (Hospitalization)
  Sender: FDA-Public Use
  Company Number: DE-ABBOTT-08P-062-0478850-00

PATIENT
  Sex: Male
  Weight: 79 kg

DRUGS (4)
  1. HUMIRA [Suspect]
     Indication: PSORIATIC ARTHROPATHY
     Route: 058
     Dates: start: 20050501
  2. PHENPROCOUMON [Concomitant]
     Indication: DRUG USE FOR UNKNOWN INDICATION
  3. DICLOFENAC DIETHYLAMINE [Concomitant]
     Indication: PAIN
  4. DICLOFENAC DIETHYLAMINE [Concomitant]
     Indication: PSORIATIC ARTHROPATHY

REACTIONS (1)
  - CEREBROVASCULAR ACCIDENT [None]
